FAERS Safety Report 13162773 (Version 2)
Quarter: 2018Q3

REPORT INFORMATION
  Report Type: Report from Study
  Country: US (occurrence: US)
  Receive Date: 20170130
  Receipt Date: 20180827
  Transmission Date: 20181010
  Serious: Yes (Hospitalization, Other)
  Sender: FDA-Public Use
  Company Number: PHHO2017US001817

PATIENT
  Age: 25 Year
  Sex: Female
  Weight: 65.5 kg

DRUGS (1)
  1. GSK1120212 [Suspect]
     Active Substance: TRAMETINIB
     Indication: OVARIAN EPITHELIAL CANCER
     Dosage: 2 MG, QD
     Route: 048
     Dates: start: 20150422

REACTIONS (4)
  - Vomiting [Recovered/Resolved]
  - Small intestinal obstruction [Recovered/Resolved]
  - Nausea [Recovered/Resolved]
  - Urinary tract infection [Recovered/Resolved]

NARRATIVE: CASE EVENT DATE: 20150707
